FAERS Safety Report 5719771-7 (Version None)
Quarter: 2008Q2

REPORT INFORMATION
  Report Type: 
  Country: None (occurrence: None)
  Receive Date: 20080428
  Receipt Date: 20070427
  Transmission Date: 20081010
  Serious: No
  Sender: FDA-Public Use
  Company Number: A0649073A

PATIENT
  Age: 19 Year
  Sex: Female

DRUGS (2)
  1. ZOFRAN [Suspect]
     Dosage: 4MG PER DAY
     Route: 048
     Dates: start: 20070309
  2. NO CONCURRENT MEDICATION [Concomitant]

REACTIONS (4)
  - DEHYDRATION [None]
  - DRUG EXPOSURE DURING PREGNANCY [None]
  - DRUG INEFFECTIVE [None]
  - VOMITING [None]
